FAERS Safety Report 15030507 (Version 1)
Quarter: 2018Q2

REPORT INFORMATION
  Report Type: Spontaneous
  Country: US (occurrence: US)
  Receive Date: 20180529
  Receipt Date: 20180529
  Transmission Date: 20180711
  Serious: Yes (Death)
  Sender: FDA-Public Use
  Company Number: None

PATIENT
  Age: 31 Year
  Sex: Female

DRUGS (2)
  1. VIVITROL [Suspect]
     Active Substance: NALTREXONE
     Indication: DRUG DEPENDENCE
     Route: 030
     Dates: start: 20160907, end: 20161102
  2. VIVITROL [Suspect]
     Active Substance: NALTREXONE
     Dates: start: 20171214, end: 20180402

REACTIONS (1)
  - Overdose [None]
